FAERS Safety Report 12613150 (Version 1)
Quarter: 2016Q3

REPORT INFORMATION
  Report Type: Spontaneous
  Country: US (occurrence: US)
  Receive Date: 20160802
  Receipt Date: 20160802
  Transmission Date: 20161109
  Serious: No
  Sender: FDA-Public Use
  Company Number: US-ELI_LILLY_AND_COMPANY-US201607012286

PATIENT
  Age: 85 Year
  Sex: Female

DRUGS (3)
  1. FORTEO [Suspect]
     Active Substance: TERIPARATIDE
     Indication: OSTEOPOROSIS
     Dosage: 20 UG, QD
     Dates: start: 20160619, end: 20160716
  2. PREDNISONE. [Concomitant]
     Active Substance: PREDNISONE
  3. METHOTREXATE. [Concomitant]
     Active Substance: METHOTREXATE
     Indication: SERONEGATIVE ARTHRITIS

REACTIONS (5)
  - Myalgia [Unknown]
  - Cognitive disorder [Unknown]
  - Blood parathyroid hormone abnormal [Unknown]
  - Vitamin D abnormal [Unknown]
  - Vitamin B12 abnormal [Unknown]

NARRATIVE: CASE EVENT DATE: 20160715
